FAERS Safety Report 21275052 (Version 2)
Quarter: 2022Q3

REPORT INFORMATION
  Report Type: Spontaneous
  Country: JP (occurrence: None)
  Receive Date: 20220831
  Receipt Date: 20220907
  Transmission Date: 20221026
  Serious: Yes (Hospitalization)
  Sender: FDA-Public Use
  Company Number: 2022A219018

PATIENT
  Age: 73 Year
  Sex: Female
  Weight: 46 kg

DRUGS (6)
  1. LYNPARZA [Suspect]
     Active Substance: OLAPARIB
     Indication: Ovarian cancer
     Route: 048
     Dates: start: 20210512, end: 20220608
  2. CANDESARTAN [Concomitant]
     Active Substance: CANDESARTAN
     Indication: Hyperlipidaemia
     Dosage: DOSE UNKNOWN
     Route: 048
  3. ACTARIT [Concomitant]
     Active Substance: ACTARIT
     Indication: Rheumatoid arthritis
     Route: 048
     Dates: start: 2013, end: 202204
  4. TACROLIMUS [Concomitant]
     Active Substance: TACROLIMUS
     Indication: Rheumatoid arthritis
     Route: 048
     Dates: start: 2013, end: 202204
  5. PRAVASTATIN SODIUM [Concomitant]
     Active Substance: PRAVASTATIN SODIUM
     Indication: Dyslipidaemia
     Route: 048
     Dates: start: 1995, end: 202204
  6. DAYVIGO [Concomitant]
     Active Substance: LEMBOREXANT
     Indication: Insomnia
     Route: 048
     Dates: start: 20210512, end: 20220608

REACTIONS (2)
  - Autoimmune hepatitis [Recovering/Resolving]
  - Cholelithiasis [Unknown]

NARRATIVE: CASE EVENT DATE: 20220104
